FAERS Safety Report 5761151-2 (Version None)
Quarter: 2008Q2

REPORT INFORMATION
  Report Type: 
  Country: None (occurrence: None)
  Receive Date: 20080606
  Receipt Date: 20080528
  Transmission Date: 20081010
  Serious: Yes (Other)
  Sender: FDA-Public Use
  Company Number: A0731780A

PATIENT
  Sex: Male

DRUGS (2)
  1. REQUIP [Suspect]
     Indication: RESTLESS LEGS SYNDROME
     Dosage: 6MG AT NIGHT
     Route: 048
  2. TRAMADOL HCL [Concomitant]

REACTIONS (3)
  - DRUG EFFECT DECREASED [None]
  - MALAISE [None]
  - SUDDEN ONSET OF SLEEP [None]
